FAERS Safety Report 18542298 (Version 1)
Quarter: 2020Q4

REPORT INFORMATION
  Report Type: Spontaneous
  Country: PT (occurrence: PT)
  Receive Date: 20201124
  Receipt Date: 20201124
  Transmission Date: 20210114
  Serious: Yes (Death)
  Sender: FDA-Public Use
  Company Number: PT-AKCEA THERAPEUTICS-2020IS001591

PATIENT
  Age: 42 Year
  Sex: Male
  Weight: 54.14 kg

DRUGS (11)
  1. DOMPERIDONE [Concomitant]
     Active Substance: DOMPERIDONE
     Route: 065
     Dates: start: 201004
  2. DAGRAVIT TOTAL /01709701/ [Concomitant]
     Route: 065
     Dates: start: 20140217
  3. ALPRAZOLAM. [Concomitant]
     Active Substance: ALPRAZOLAM
     Route: 065
     Dates: start: 201210
  4. GABAPENTIN. [Concomitant]
     Active Substance: GABAPENTIN
  5. TROPIUM /00011502/ [Concomitant]
     Route: 065
     Dates: start: 20120523
  6. ALFUZOSIN [Concomitant]
     Active Substance: ALFUZOSIN
     Route: 065
     Dates: start: 2013
  7. GABAPENTIN. [Concomitant]
     Active Substance: GABAPENTIN
     Route: 065
     Dates: start: 2009
  8. TEGSEDI [Suspect]
     Active Substance: INOTERSEN SODIUM
     Indication: HEREDITARY NEUROPATHIC AMYLOIDOSIS
     Route: 058
     Dates: start: 20140217, end: 20201025
  9. DICLOFENAC [Concomitant]
     Active Substance: DICLOFENAC
     Route: 065
  10. NIMESULIDE [Concomitant]
     Active Substance: NIMESULIDE
     Route: 065
  11. ISSD (INTEGRATED SYRINGE SAFETY DEVICE) [Suspect]
     Active Substance: DEVICE

REACTIONS (1)
  - Road traffic accident [Fatal]

NARRATIVE: CASE EVENT DATE: 20201025
